FAERS Safety Report 15823719 (Version 3)
Quarter: 2019Q2

REPORT INFORMATION
  Report Type: Spontaneous
  Country: US (occurrence: US)
  Receive Date: 20190114
  Receipt Date: 20190530
  Transmission Date: 20190711
  Serious: Yes (Hospitalization)
  Sender: FDA-Public Use
  Company Number: US-PFIZER INC-2019015993

PATIENT
  Age: 75 Year
  Sex: Female

DRUGS (3)
  1. IBRANCE [Suspect]
     Active Substance: PALBOCICLIB
     Indication: BREAST CANCER METASTATIC
     Dosage: 125 MG, CYCLIC (ONCE DAILY FOR 21 DAYS, OFF 7 DAYS)
     Dates: start: 20171202
  2. FASLODEX [Suspect]
     Active Substance: FULVESTRANT
     Indication: BREAST CANCER METASTATIC
     Dosage: 250 MG/ 5 ML EACH MONTH
     Route: 030
     Dates: start: 20171102
  3. XGEVA [Suspect]
     Active Substance: DENOSUMAB
     Indication: BREAST CANCER METASTATIC
     Dosage: 120 MG/ 1.7 ML (70 MG/ ML), EVERY 3 MONTH
     Route: 058
     Dates: start: 201712

REACTIONS (1)
  - Sciatica [Recovered/Resolved]

NARRATIVE: CASE EVENT DATE: 201806
